FAERS Safety Report 17892740 (Version 1)
Quarter: 2020Q2

REPORT INFORMATION
  Report Type: Spontaneous
  Country: US (occurrence: US)
  Receive Date: 20200613
  Receipt Date: 20200613
  Transmission Date: 20200714
  Serious: No
  Sender: FDA-Public Use
  Company Number: US-ASTRAZENECA-2020SE74096

PATIENT
  Age: 24192 Day
  Sex: Male
  Weight: 113.4 kg

DRUGS (2)
  1. BYDUREON [Suspect]
     Active Substance: EXENATIDE
     Indication: DIABETES MELLITUS
     Route: 058
  2. HUMIRA [Concomitant]
     Active Substance: ADALIMUMAB

REACTIONS (5)
  - Intentional product misuse [Not Recovered/Not Resolved]
  - Injection site mass [Unknown]
  - Incorrect dose administered [Unknown]
  - Abdominal discomfort [Unknown]
  - Device issue [Unknown]

NARRATIVE: CASE EVENT DATE: 20200605
